FAERS Safety Report 21368514 (Version 2)
Quarter: 2022Q4

REPORT INFORMATION
  Report Type: Spontaneous
  Country: US (occurrence: US)
  Receive Date: 20220923
  Receipt Date: 20221011
  Transmission Date: 20230113
  Serious: Yes (Hospitalization)
  Sender: FDA-Public Use
  Company Number: US-NXDC-2022GLE00042

PATIENT
  Age: 73 Year
  Sex: Female
  Weight: 66.3 kg

DRUGS (13)
  1. GLEOLAN [Suspect]
     Active Substance: AMINOLEVULINIC ACID HYDROCHLORIDE
     Indication: Photodynamic diagnostic procedure
     Route: 048
     Dates: start: 20220906
  2. Keppre [Concomitant]
     Indication: Premedication
  3. DEXAMETHASONE [Concomitant]
     Active Substance: DEXAMETHASONE
     Indication: Premedication
  4. PROPOFOL [Concomitant]
     Active Substance: PROPOFOL
     Indication: Premedication
  5. PROPOFOL [Concomitant]
     Active Substance: PROPOFOL
     Indication: Premedication
     Route: 040
  6. FENTANYL [Concomitant]
     Active Substance: FENTANYL
     Indication: Premedication
  7. ROCURONIUM [Concomitant]
     Active Substance: ROCURONIUM BROMIDE
     Indication: Premedication
  8. LEVOTHYROXINE [Concomitant]
     Active Substance: LEVOTHYROXINE
  9. LIOTHYRONINE [Concomitant]
     Active Substance: LIOTHYRONINE
  10. GABAPENTIN [Concomitant]
     Active Substance: GABAPENTIN
     Dosage: 600MG NIGHTLY
  11. PANTOPRAZOLE [Concomitant]
     Active Substance: PANTOPRAZOLE
  12. METFORMIN [Concomitant]
     Active Substance: METFORMIN HYDROCHLORIDE
     Dosage: 500MG TWO TIMES A DAY (HELD DURING INPATIENT STAY)
  13. APIXABAN [Concomitant]
     Active Substance: APIXABAN
     Dosage: 2.5MG TWO TIMES A DAY (HELD FOR A WEEK PRIOR TO SURGERY AND TWO WEEKS AFTER)

REACTIONS (2)
  - Encephalopathy [Recovered/Resolved]
  - Seizure [Recovered/Resolved]

NARRATIVE: CASE EVENT DATE: 20220906
